FAERS Safety Report 16695093 (Version 2)
Quarter: 2019Q3

REPORT INFORMATION
  Report Type: Spontaneous
  Country: US (occurrence: US)
  Receive Date: 20190813
  Receipt Date: 20190822
  Transmission Date: 20191004
  Serious: Yes (Hospitalization)
  Sender: FDA-Public Use
  Company Number: US-AJANTA PHARMA USA INC.-2073071

PATIENT
  Age: 45 Year
  Sex: Male
  Weight: 93.18 kg

DRUGS (7)
  1. DULOXETINE (ANDA 208706) [Suspect]
     Active Substance: DULOXETINE
     Indication: NERVE INJURY
     Route: 048
     Dates: start: 20190607, end: 20190724
  2. MELOXICAM. [Concomitant]
     Active Substance: MELOXICAM
  3. AMBIEN [Concomitant]
     Active Substance: ZOLPIDEM TARTRATE
     Route: 048
  4. GABAPENTIN. [Concomitant]
     Active Substance: GABAPENTIN
  5. NORVASC [Suspect]
     Active Substance: AMLODIPINE BESYLATE
  6. TRAMADOL. [Concomitant]
     Active Substance: TRAMADOL
  7. LISINOPRIL. [Suspect]
     Active Substance: LISINOPRIL

REACTIONS (24)
  - Seizure [Recovered/Resolved]
  - Anaemia [Not Recovered/Not Resolved]
  - Dehydration [Not Recovered/Not Resolved]
  - Acute kidney injury [Recovered/Resolved]
  - Anaemia vitamin B12 deficiency [Not Recovered/Not Resolved]
  - Calculus urinary [Not Recovered/Not Resolved]
  - Haemorrhoids [Not Recovered/Not Resolved]
  - Abnormal loss of weight [Not Recovered/Not Resolved]
  - Hydronephrosis [Recovered/Resolved]
  - Diverticulum [Not Recovered/Not Resolved]
  - Hyperhidrosis [Recovered/Resolved]
  - Orthostatic hypotension [Recovered/Resolved]
  - Abdominal pain upper [Unknown]
  - Nephrolithiasis [Unknown]
  - Malaise [Unknown]
  - Loss of consciousness [Recovered/Resolved]
  - Hypotension [Recovered/Resolved]
  - Chest pain [Recovered/Resolved]
  - Tremor [Recovered/Resolved]
  - Flank pain [Unknown]
  - Early satiety [Not Recovered/Not Resolved]
  - Nausea [Recovered/Resolved]
  - Asthenia [Recovered/Resolved]
  - Fatigue [Unknown]

NARRATIVE: CASE EVENT DATE: 2019
